FAERS Safety Report 18362990 (Version 1)
Quarter: 2020Q4

REPORT INFORMATION
  Report Type: Spontaneous
  Country: DE (occurrence: DE)
  Receive Date: 20201008
  Receipt Date: 20201008
  Transmission Date: 20210114
  Serious: Yes (Death, Hospitalization, Other)
  Sender: FDA-Public Use
  Company Number: DE-BRISTOL-MYERS SQUIBB COMPANY-BMS-2020-081408

PATIENT
  Age: 77 Year
  Sex: Female
  Weight: 85 kg

DRUGS (1)
  1. ELIQUIS [Suspect]
     Active Substance: APIXABAN
     Indication: CEREBROVASCULAR ACCIDENT PROPHYLAXIS
     Dosage: UNK
     Route: 048
     Dates: start: 2019, end: 20200928

REACTIONS (3)
  - Vomiting [Unknown]
  - Cerebral haemorrhage [Fatal]
  - Disturbance in attention [Unknown]

NARRATIVE: CASE EVENT DATE: 20200928
